FAERS Safety Report 6441126-0 (Version None)
Quarter: 2009Q4

REPORT INFORMATION
  Report Type: 
  Country: None (occurrence: None)
  Receive Date: 20091116
  Receipt Date: 20090828
  Transmission Date: 20100525
  Serious: No
  Sender: FDA-Public Use
  Company Number: US-BAYER-200931538NA

PATIENT
  Age: 40 Year
  Sex: Female
  Weight: 57 kg

DRUGS (1)
  1. ULTRAVIST (PHARMACY BULK) [Suspect]
     Indication: COMPUTERISED TOMOGRAM HEAD
     Dosage: TOTAL DAILY DOSE: 90 ML  UNIT DOSE: 500 ML
     Route: 042
     Dates: start: 20090827, end: 20090827

REACTIONS (3)
  - AGITATION [None]
  - SPEECH DISORDER [None]
  - URTICARIA [None]
